FAERS Safety Report 24226481 (Version 1)
Quarter: 2024Q3

REPORT INFORMATION
  Report Type: Spontaneous
  Country: JP (occurrence: JP)
  Receive Date: 20240820
  Receipt Date: 20240820
  Transmission Date: 20241017
  Serious: Yes (Other)
  Sender: Visiox
  Company Number: JP-VISIOX-2024VSX00002

PATIENT
  Age: 81 Year
  Sex: Female

DRUGS (2)
  1. OMIDENEPAG ISOPROPYL [Suspect]
     Active Substance: OMIDENEPAG ISOPROPYL
     Indication: Exfoliation glaucoma
     Dosage: UNK
     Route: 047
  2. DORZOLAMIDE HYDROCHLORIDE\TIMOLOL MALEATE [Suspect]
     Active Substance: DORZOLAMIDE HYDROCHLORIDE\TIMOLOL MALEATE
     Indication: Exfoliation glaucoma
     Dosage: UNK
     Route: 047

REACTIONS (3)
  - Cataract [Unknown]
  - Fibrin deposition on lens postoperative [Recovered/Resolved]
  - Iris adhesions [Recovered/Resolved]
